FAERS Safety Report 15744270 (Version 5)
Quarter: 2019Q2

REPORT INFORMATION
  Report Type: Spontaneous
  Country: JP (occurrence: JP)
  Receive Date: 20181220
  Receipt Date: 20190402
  Transmission Date: 20190711
  Serious: Yes (Death, Life-Threatening, Hospitalization, Other)
  Sender: FDA-Public Use
  Company Number: JP-ASTRAZENECA-2018SF67198

PATIENT
  Age: 28062 Day
  Sex: Male
  Weight: 53 kg

DRUGS (6)
  1. TAGRISSO [Suspect]
     Active Substance: OSIMERTINIB
     Indication: NON-SMALL CELL LUNG CANCER
     Route: 048
     Dates: start: 20181206, end: 20181212
  2. REBAMIPIDE [Concomitant]
     Active Substance: REBAMIPIDE
     Route: 048
     Dates: start: 20181211
  3. TEICOPLANIN [Concomitant]
     Active Substance: TEICOPLANIN
     Dosage: DOSE UNKNOWN
     Route: 065
     Dates: start: 20181122
  4. LOXOPROFEN [Concomitant]
     Active Substance: LOXOPROFEN
     Route: 048
     Dates: start: 20181211
  5. MEROPENEM. [Concomitant]
     Active Substance: MEROPENEM
     Dosage: DOSE UNKNOWN
     Route: 065
     Dates: start: 20181122
  6. GENINAX [Concomitant]
     Active Substance: GARENOXACIN MESYLATE
     Indication: NON-SMALL CELL LUNG CANCER
     Route: 048
     Dates: start: 20181205, end: 20181221

REACTIONS (1)
  - Lung disorder [Fatal]

NARRATIVE: CASE EVENT DATE: 20181210
